FAERS Safety Report 9418028 (Version 8)
Quarter: 2015Q2

REPORT INFORMATION
  Report Type: Spontaneous
  Country: US (occurrence: US)
  Receive Date: 20130724
  Receipt Date: 20150525
  Transmission Date: 20150821
  Serious: Yes (Hospitalization, Other)
  Sender: FDA-Public Use
  Company Number: US-JNJFOC-20130709737

PATIENT
  Sex: Male

DRUGS (3)
  1. RISPERDAL CONSTA [Suspect]
     Active Substance: RISPERIDONE
     Indication: PRODUCT USED FOR UNKNOWN INDICATION
     Route: 030
  2. RISPERDAL [Suspect]
     Active Substance: RISPERIDONE
     Indication: PRODUCT USED FOR UNKNOWN INDICATION
     Route: 065
  3. RISPERDAL CONSTA [Suspect]
     Active Substance: RISPERIDONE
     Indication: PRODUCT USED FOR UNKNOWN INDICATION
     Route: 030
     Dates: start: 201304, end: 201304

REACTIONS (46)
  - Sedation [Recovered/Resolved]
  - Hypertension [Not Recovered/Not Resolved]
  - Localised infection [Unknown]
  - Confusional state [Not Recovered/Not Resolved]
  - Asthenia [Unknown]
  - Homicidal ideation [Not Recovered/Not Resolved]
  - Incorrect route of drug administration [Recovered/Resolved]
  - Tinnitus [Not Recovered/Not Resolved]
  - Fatigue [Not Recovered/Not Resolved]
  - Incorrect route of drug administration [Unknown]
  - Hair growth abnormal [Not Recovered/Not Resolved]
  - Overdose [Recovered/Resolved]
  - Blood cholesterol increased [Unknown]
  - Loss of consciousness [Recovered/Resolved]
  - Diabetes mellitus [Not Recovered/Not Resolved]
  - Diarrhoea [Unknown]
  - Alopecia [Unknown]
  - Acne [Not Recovered/Not Resolved]
  - Paraesthesia [Not Recovered/Not Resolved]
  - Cerumen impaction [Unknown]
  - Feeling abnormal [Not Recovered/Not Resolved]
  - Breast enlargement [Not Recovered/Not Resolved]
  - Skin lesion [Unknown]
  - Seizure [Unknown]
  - Palpitations [Unknown]
  - Drug diversion [Unknown]
  - Ligament sprain [Unknown]
  - Bone pain [Unknown]
  - Abnormal sensation in eye [Not Recovered/Not Resolved]
  - Feeling cold [Not Recovered/Not Resolved]
  - Dyspnoea [Unknown]
  - Poisoning [Not Recovered/Not Resolved]
  - Tremor [Not Recovered/Not Resolved]
  - Libido increased [Unknown]
  - Adverse event [Unknown]
  - Injection site reaction [Unknown]
  - Fluid retention [Not Recovered/Not Resolved]
  - Vein collapse [Not Recovered/Not Resolved]
  - Insomnia [Not Recovered/Not Resolved]
  - Vomiting [Unknown]
  - Unevaluable event [Recovered/Resolved]
  - Needle track marks [Not Recovered/Not Resolved]
  - Drug administration error [Recovered/Resolved]
  - Headache [Not Recovered/Not Resolved]
  - Victim of sexual abuse [Recovered/Resolved]
  - Wrong drug administered [Unknown]

NARRATIVE: CASE EVENT DATE: 2013
